FAERS Safety Report 9404633 (Version 1)
Quarter: 2013Q3

REPORT INFORMATION
  Report Type: Spontaneous
  Country: KR (occurrence: KR)
  Receive Date: 20130717
  Receipt Date: 20130717
  Transmission Date: 20140515
  Serious: Yes (Hospitalization)
  Sender: FDA-Public Use
  Company Number: PHHY2013KR073728

PATIENT
  Age: 57 Year
  Sex: Female

DRUGS (8)
  1. CICLOSPORIN [Suspect]
     Dosage: 50 MG, BID
  2. COLCHICINE [Suspect]
     Indication: HYPERGLYCAEMIA
     Dosage: 0.3 MG, BID
  3. PREDNISOLONE [Concomitant]
     Dosage: 10 MG, BID
  4. PREDNISOLONE [Concomitant]
     Dosage: 5 MG, PRN
  5. ALLOPURINOL [Concomitant]
     Dosage: 100 MG, QD
  6. DEFLAZACORT [Concomitant]
     Dosage: 3 MG, QD
  7. MYCOPHENOLATE [Concomitant]
     Dosage: 500 MG, BID
  8. ROSUVASTATIN [Concomitant]
     Dosage: 20 MG, QD
     Dates: start: 200901

REACTIONS (11)
  - Myopathy [Recovered/Resolved]
  - Neuropathy peripheral [Recovered/Resolved]
  - Paraesthesia [Recovering/Resolving]
  - Hypoaesthesia [Recovered/Resolved]
  - Toxicity to various agents [Recovered/Resolved]
  - Hypophagia [Recovered/Resolved]
  - Dehydration [Recovered/Resolved]
  - Transaminases increased [Recovered/Resolved]
  - Abdominal pain upper [Recovered/Resolved]
  - Nausea [Recovered/Resolved]
  - Vomiting [Recovered/Resolved]
